FAERS Safety Report 4486971-6 (Version None)
Quarter: 2004Q4

REPORT INFORMATION
  Report Type: 
  Country: None (occurrence: None)
  Receive Date: 20041027
  Receipt Date: 20041018
  Transmission Date: 20050328
  Serious: Yes (Life-Threatening)
  Sender: FDA-Public Use
  Company Number: JP-ROCHE-383455

PATIENT
  Age: 49 Year
  Sex: Male

DRUGS (4)
  1. PERDIPINE [Suspect]
     Route: 051
  2. MEPIVACAINE [Concomitant]
     Indication: ANAESTHESIA
     Route: 008
  3. PROPOFOL [Concomitant]
     Indication: ANAESTHESIA
     Route: 008
  4. VECURONIUM [Concomitant]
     Indication: ANAESTHESIA
     Route: 008

REACTIONS (4)
  - BLOOD PRESSURE IMMEASURABLE [None]
  - CARDIAC ARREST [None]
  - MYOCARDIAL ISCHAEMIA [None]
  - PHAEOCHROMOCYTOMA [None]
